FAERS Safety Report 6051890-0 (Version None)
Quarter: 2009Q1

REPORT INFORMATION
  Report Type: 
  Country: None (occurrence: None)
  Receive Date: 20090121
  Receipt Date: 20090121
  Transmission Date: 20090719
  Serious: Yes (Hospitalization)
  Sender: FDA-Public Use
  Company Number: None

PATIENT
  Age: 56 Year
  Sex: Female
  Weight: 70.3075 kg

DRUGS (4)
  1. RYTHMOL [Suspect]
     Indication: CARDIAC DISORDER
     Dosage: 300 MG 8 HRS ORAL
     Route: 048
     Dates: start: 19970101
  2. ASPIRIN [Concomitant]
  3. FEMALE HORMONE REPLACEMENT [Concomitant]
  4. AMBIEN CR [Concomitant]

REACTIONS (2)
  - HEART RATE INCREASED [None]
  - HEART RATE IRREGULAR [None]
